FAERS Safety Report 4959677-4 (Version None)
Quarter: 2006Q1

REPORT INFORMATION
  Report Type: 
  Country: None (occurrence: None)
  Receive Date: 20060328
  Receipt Date: 20060314
  Transmission Date: 20060701
  Serious: Yes (Hospitalization, Other)
  Sender: FDA-Public Use
  Company Number: 2006036025

PATIENT
  Sex: Male

DRUGS (2)
  1. VIAGRA [Suspect]
     Indication: ILL-DEFINED DISORDER
  2. NORVASC [Concomitant]

REACTIONS (3)
  - DRUG EFFECT DECREASED [None]
  - NEOPLASM MALIGNANT [None]
  - VISION BLURRED [None]
